FAERS Safety Report 19356030 (Version 1)
Quarter: 2021Q2

REPORT INFORMATION
  Report Type: Spontaneous
  Country: PL (occurrence: PL)
  Receive Date: 20210602
  Receipt Date: 20210602
  Transmission Date: 20210717
  Serious: Yes (Death)
  Sender: FDA-Public Use
  Company Number: PL-ORION CORPORATION ORION PHARMA-TREX2021-0028

PATIENT
  Sex: Male

DRUGS (1)
  1. TREXAN (METHOTREXATE) [Suspect]
     Active Substance: METHOTREXATE SODIUM
     Indication: PRODUCT USED FOR UNKNOWN INDICATION
     Dosage: STRENGTH: 10 MG; 100 PIECES
     Route: 065

REACTIONS (1)
  - Toxicity to various agents [Fatal]
